FAERS Safety Report 10225519 (Version 1)
Quarter: 2014Q2

REPORT INFORMATION
  Report Type: Spontaneous
  Country: US (occurrence: US)
  Receive Date: 20140609
  Receipt Date: 20140609
  Transmission Date: 20141212
  Serious: No
  Sender: FDA-Public Use
  Company Number: US-ASTELLAS-2014US001408

PATIENT
  Age: 72 Year
  Sex: Female

DRUGS (12)
  1. PROGRAF [Suspect]
     Indication: PROPHYLAXIS AGAINST GRAFT VERSUS HOST DISEASE
     Dosage: 1 MG, 2 MG AM/ 3 MG PM
     Route: 048
     Dates: start: 20131215
  2. ACYCLOVIR                          /00587301/ [Concomitant]
     Indication: ANTIVIRAL PROPHYLAXIS
     Route: 048
     Dates: start: 20131009
  3. ATIVAN [Concomitant]
     Indication: INSOMNIA
     Dosage: 0.5 MG, ONCE DAILY
     Route: 048
     Dates: start: 2011
  4. CALCIUM 600+VIT D [Concomitant]
     Indication: SUPPLEMENTATION THERAPY
     Dosage: 1 TAB, UID/QD
     Route: 048
     Dates: start: 20110119
  5. CENTRUM SILVER                     /02363801/ [Concomitant]
     Indication: SUPPLEMENTATION THERAPY
     Dosage: 1 TAB, UID/QD
     Route: 048
     Dates: start: 20110919
  6. CETIRIZINE HCL [Concomitant]
     Indication: HYPERSENSITIVITY
     Route: 048
     Dates: start: 2012
  7. FLONASE [Concomitant]
     Indication: HYPERSENSITIVITY
     Dosage: 1SPRAY EACH NOSTRIL, UID/QD
     Route: 045
     Dates: start: 20130528
  8. LATANOPROST [Concomitant]
     Indication: GLAUCOMA
     Dosage: 1 DROPS, EACH EYE, UID/QD
     Route: 047
     Dates: start: 20131128
  9. LEVAQUIN [Concomitant]
     Indication: INFECTION PROPHYLAXIS
     Route: 048
     Dates: start: 20131204
  10. MAGNESIUM OXIDE [Concomitant]
     Indication: SUPPLEMENTATION THERAPY
     Route: 048
     Dates: start: 20131206
  11. VITAMIN B12                        /00056201/ [Concomitant]
     Indication: SUPPLEMENTATION THERAPY
     Dosage: 1 TAB, UID/QD
     Route: 048
     Dates: start: 20120906
  12. INVESTIGATIONAL DRUG [Concomitant]
     Indication: IMMUNISATION
     Dosage: 1 ML, OTHER-SINGLE DOSE
     Route: 030
     Dates: start: 20131127, end: 20131127

REACTIONS (1)
  - Off label use [Unknown]
